FAERS Safety Report 6805532-4 (Version None)
Quarter: 2010Q2

REPORT INFORMATION
  Report Type: 
  Country: None (occurrence: None)
  Receive Date: 20100628
  Receipt Date: 20071211
  Transmission Date: 20101027
  Serious: Yes (Other)
  Sender: FDA-Public Use
  Company Number: US-PFIZER INC-2007104573

PATIENT
  Age: 40 Year
  Sex: Female

DRUGS (6)
  1. REVATIO [Suspect]
     Indication: PULMONARY ARTERIAL HYPERTENSION
     Dates: start: 20060301
  2. MACRODANTIN [Concomitant]
  3. LASIX [Concomitant]
     Route: 048
     Dates: start: 20060410
  4. SINGULAIR ^DIECKMANN^ [Concomitant]
     Dates: start: 20060101
  5. CARDIZEM CD [Concomitant]
     Route: 048
     Dates: start: 20060922
  6. SPIRONOLACTONE [Concomitant]
     Dates: start: 20060922

REACTIONS (1)
  - DEAFNESS [None]
